FAERS Safety Report 5503926-0 (Version None)
Quarter: 2007Q4

REPORT INFORMATION
  Report Type: 
  Country: None (occurrence: None)
  Receive Date: 20071101
  Receipt Date: 20071025
  Transmission Date: 20080405
  Serious: Yes (Death)
  Sender: FDA-Public Use
  Company Number: DE-GENENTECH-207220

PATIENT
  Sex: Female

DRUGS (2)
  1. ACTIVASE [Suspect]
  2. ASPIRIN [Concomitant]
     Dosage: 300 MG, UNK
     Route: 048
     Dates: start: 20030306, end: 20030314

REACTIONS (1)
  - COMA [None]
